FAERS Safety Report 4662573-3 (Version None)
Quarter: 2005Q2

REPORT INFORMATION
  Report Type: 
  Country: None (occurrence: None)
  Receive Date: 20050512
  Receipt Date: 20050411
  Transmission Date: 20051028
  Serious: Yes (Hospitalization)
  Sender: FDA-Public Use
  Company Number: PAR_0034_2005

PATIENT
  Age: 69 Year
  Sex: Male

DRUGS (3)
  1. ISOPTIN [Suspect]
     Indication: HYPERTENSION
     Dosage: 240 MG QDAY PO
     Route: 048
     Dates: start: 19990101, end: 20050201
  2. VERAPAMIL [Suspect]
     Indication: HYPERTENSION
     Dosage: 60 MG QDAY PO
     Route: 048
     Dates: start: 19990101, end: 20050201
  3. CALCIUM GLUCONATE [Concomitant]

REACTIONS (7)
  - DEMYELINATING POLYNEUROPATHY [None]
  - DRUG INTOLERANCE [None]
  - MUSCLE SPASMS [None]
  - PAIN [None]
  - PARAESTHESIA [None]
  - PERIPHERAL SENSORY NEUROPATHY [None]
  - SLEEP DISORDER [None]
